FAERS Safety Report 25279243 (Version 1)
Quarter: 2025Q2

REPORT INFORMATION
  Report Type: Spontaneous
  Country: NO (occurrence: NO)
  Receive Date: 20250507
  Receipt Date: 20250507
  Transmission Date: 20250716
  Serious: Yes (Hospitalization)
  Sender: ALEXION PHARMACEUTICALS
  Company Number: None

PATIENT
  Age: 73 Year

DRUGS (14)
  1. TEZSPIRE [Suspect]
     Active Substance: TEZEPELUMAB-EKKO
     Indication: Asthma
     Dosage: CONTINUED USE OF MEDICINAL PRODUCT
  2. TEZSPIRE [Suspect]
     Active Substance: TEZEPELUMAB-EKKO
  3. MICARDIS [Concomitant]
     Active Substance: TELMISARTAN
     Dosage: 80 MG (MILLIGRAM)
  4. AMLODIPINE [Concomitant]
     Active Substance: AMLODIPINE BESYLATE
     Dosage: 10  MILLIGRAM, QD
     Route: 065
  5. ALITRETINOIN [Concomitant]
     Active Substance: ALITRETINOIN
     Indication: Palmoplantar pustulosis
     Dosage: 30 MG (MILLIGRAM)
     Route: 065
  6. CRESTOR [Concomitant]
     Active Substance: ROSUVASTATIN CALCIUM
     Dosage: 40 MG (MILLIGRAM)
     Route: 065
  7. EZETIMIBE [Concomitant]
     Active Substance: EZETIMIBE
     Dosage: 10 MG (MILLIGRAM)
     Route: 065
  8. ALENDRONATE SODIUM [Concomitant]
     Active Substance: ALENDRONATE SODIUM
     Dosage: 7 MG (MILLIGRAM)  1 TABLET EVERY MONDAY
     Route: 065
  9. SPIRIVA RESPIMAT [Concomitant]
     Active Substance: TIOTROPIUM BROMIDE
     Dosage: 2 DOSAGE FORM, QD
     Route: 065
  10. Inuxair [Concomitant]
     Dosage: 2 DOSAGE FORM, Q12H
     Route: 065
  11. SINGULAIR [Concomitant]
     Active Substance: MONTELUKAST SODIUM
     Dosage: 10  MG (MILLIGRAM)
  12. CALCIUM CARBONATE\CHOLECALCIFEROL [Concomitant]
     Active Substance: CALCIUM CARBONATE\CHOLECALCIFEROL
     Dosage: 1 {DF} (DOSAGE FORM)
     Route: 065
  13. ACETAMINOPHEN [Concomitant]
     Active Substance: ACETAMINOPHEN
     Route: 065
  14. ALBUTEROL [Concomitant]
     Active Substance: ALBUTEROL
     Route: 065

REACTIONS (14)
  - Encephalitis autoimmune [Recovering/Resolving]
  - Headache [Recovering/Resolving]
  - Phonophobia [Recovering/Resolving]
  - Photophobia [Recovering/Resolving]
  - Vision blurred [Recovering/Resolving]
  - Fatigue [Recovering/Resolving]
  - Increased need for sleep [Recovering/Resolving]
  - Frequent bowel movements [Recovering/Resolving]
  - Abdominal pain [Recovering/Resolving]
  - Affect lability [Recovering/Resolving]
  - Urinary tract infection [Recovered/Resolved]
  - Crohn^s disease [Unknown]
  - Renal failure [Recovered/Resolved]
  - Decreased appetite [Recovering/Resolving]
